FAERS Safety Report 7358907-1 (Version None)
Quarter: 2011Q1

REPORT INFORMATION
  Report Type: 
  Country: None (occurrence: None)
  Receive Date: 20110317
  Receipt Date: 20110304
  Transmission Date: 20110831
  Serious: Yes (Hospitalization, Other)
  Sender: FDA-Public Use
  Company Number: GB-WATSON-2011-03331

PATIENT
  Age: 37 Year
  Sex: Female

DRUGS (8)
  1. LAMOTRIGINE [Suspect]
     Dosage: 450 MG, DAILY
  2. LACOSAMIDE [Suspect]
     Dosage: 300 MG, DAILY
     Route: 065
  3. PHENYTOIN [Suspect]
     Dosage: UNK
     Route: 065
  4. PHENYTOIN [Suspect]
     Indication: EPILEPSY
     Dosage: 375 MG, DAILY
     Route: 065
  5. LAMOTRIGINE [Suspect]
     Indication: EPILEPSY
     Dosage: 500 MG, DAILY
  6. PHENYTOIN [Suspect]
     Dosage: 325 MG, DAILY
     Route: 065
  7. LACOSAMIDE [Suspect]
     Indication: EPILEPSY
     Dosage: 200 MG, UNKNOWN
     Route: 065
  8. LACOSAMIDE [Suspect]
     Dosage: 1200 MG, DAILY
     Route: 065

REACTIONS (5)
  - BALANCE DISORDER [None]
  - DRUG INEFFECTIVE [None]
  - DRUG INTERACTION [None]
  - DIPLOPIA [None]
  - DIZZINESS [None]
